FAERS Safety Report 12843081 (Version 1)
Quarter: 2016Q4

REPORT INFORMATION
  Report Type: Spontaneous
  Country: CH (occurrence: CH)
  Receive Date: 20161013
  Receipt Date: 20161013
  Transmission Date: 20170207
  Serious: Yes (Hospitalization)
  Sender: FDA-Public Use
  Company Number: CH-BAYER-2016-192809

PATIENT
  Age: 81 Year
  Sex: Male

DRUGS (11)
  1. TRIATEC [Suspect]
     Active Substance: RAMIPRIL
     Dosage: 2.5 MG, QD
  2. PLAVIX [Suspect]
     Active Substance: CLOPIDOGREL BISULFATE
     Dosage: 75 MG, QD
     Route: 048
  3. TOREM [Suspect]
     Active Substance: TORSEMIDE
     Dosage: 200 MG, QD
     Route: 048
  4. TEMESTA [Suspect]
     Active Substance: LORAZEPAM
     Dosage: 1 MG, BID
     Route: 048
  5. CIPRALEX [Suspect]
     Active Substance: ESCITALOPRAM OXALATE
     Dosage: 10 MG, QD
  6. ASPIRIN CARDIO [Suspect]
     Active Substance: ASPIRIN
     Dosage: 100 MG, QD
  7. CIRCADIN [Suspect]
     Active Substance: MELATONIN
     Dosage: 10 MG, QD
     Route: 048
  8. HYDROMORPHONI HYDROCHLORIDUM STREULI [Suspect]
     Active Substance: HYDROMORPHONE HYDROCHLORIDE
     Indication: ARTHRALGIA
     Dosage: 10 ML, QID
  9. PANTOZOL [Suspect]
     Active Substance: PANTOPRAZOLE SODIUM
     Dosage: 20 MG, QD
  10. HALDOL [Suspect]
     Active Substance: HALOPERIDOL
  11. INSULIN NOVOMIX [Suspect]
     Active Substance: INSULIN ASPART
     Dosage: 28 -0 -14-0

REACTIONS (3)
  - Syncope [Unknown]
  - Haematoma [Unknown]
  - Fall [Unknown]

NARRATIVE: CASE EVENT DATE: 20160909
